FAERS Safety Report 7172786-7 (Version None)
Quarter: 2010Q4

REPORT INFORMATION
  Report Type: 
  Country: None (occurrence: None)
  Receive Date: 20101219
  Receipt Date: 20100212
  Transmission Date: 20110411
  Serious: No
  Sender: FDA-Public Use
  Company Number: US-AMGEN-KDL392424

PATIENT

DRUGS (7)
  1. ENBREL [Suspect]
     Indication: PRODUCT USED FOR UNKNOWN INDICATION
     Dosage: 50 MG, QWK
     Route: 058
  2. PREDNISONE [Concomitant]
  3. ALPRAZOLAM [Concomitant]
     Dosage: .25 MG, UNK
  4. METHADONE [Concomitant]
     Dosage: 10 MG, UNK
  5. OXYCODONE [Concomitant]
     Dosage: 5 MG, UNK
  6. LEVOTHYROXINE SODIUM [Concomitant]
     Dosage: 25 A?G, UNK
  7. OXYCODONE HYDROCHLORIDE [Concomitant]
     Dosage: 10 MG, UNK

REACTIONS (5)
  - ERYTHEMA [None]
  - JOINT INJURY [None]
  - JOINT SWELLING [None]
  - PURULENT DISCHARGE [None]
  - WRIST FRACTURE [None]
